FAERS Safety Report 22272816 (Version 1)
Quarter: 2023Q2

REPORT INFORMATION
  Report Type: Spontaneous
  Country: TW (occurrence: TW)
  Receive Date: 20230502
  Receipt Date: 20230502
  Transmission Date: 20230722
  Serious: Yes (Life-Threatening, Hospitalization, Other)
  Sender: FDA-Public Use
  Company Number: TW-ALKEM LABORATORIES LIMITED-TW-ALKEM-2022-04569

PATIENT
  Age: 18 Year
  Sex: Male
  Weight: 112 kg

DRUGS (6)
  1. CAFFEINE [Suspect]
     Active Substance: CAFFEINE
     Indication: Product used for unknown indication
     Dosage: 30 GRAM PURE POWDER
     Route: 065
  2. LIDOCAINE [Suspect]
     Active Substance: LIDOCAINE
     Indication: Product used for unknown indication
     Dosage: 100 MILLIGRAM
     Route: 065
  3. ADENOSINE [Suspect]
     Active Substance: ADENOSINE
     Indication: Product used for unknown indication
     Dosage: 6 MILLIGRAM
     Route: 065
  4. ADENOSINE [Suspect]
     Active Substance: ADENOSINE
     Dosage: 12 MILLIGRAM
     Route: 065
  5. DILTIAZEM [Suspect]
     Active Substance: DILTIAZEM
     Indication: Product used for unknown indication
     Dosage: 10 MILLIGRAM
     Route: 065
  6. SODIUM BICARBONATE [Suspect]
     Active Substance: SODIUM BICARBONATE
     Indication: Product used for unknown indication
     Dosage: 250 MILLIGRAM
     Route: 065

REACTIONS (12)
  - Suicide attempt [Unknown]
  - Seizure [Unknown]
  - Hypokalaemia [Unknown]
  - Lactic acidosis [Unknown]
  - Toxicity to various agents [Unknown]
  - Overdose [Unknown]
  - Supraventricular tachycardia [Recovered/Resolved]
  - Hypertension [Unknown]
  - Postictal state [Unknown]
  - Leukocytosis [Unknown]
  - Metabolic acidosis [Unknown]
  - Treatment failure [Unknown]
